APPROVED DRUG PRODUCT: ELIQUIS
Active Ingredient: APIXABAN
Strength: 0.5MG
Dosage Form/Route: TABLET, FOR SUSPENSION;ORAL
Application: N202155 | Product #003
Applicant: BRISTOL MYERS SQUIBB CO PHARMACEUTICAL RESEARCH INSTITUTE
Approved: Apr 17, 2025 | RLD: Yes | RS: Yes | Type: RX

PATENTS:
Patent 6967208 | Expires: Nov 21, 2026
Patent 9326945 | Expires: Feb 24, 2031
Patent 6967208*PED | Expires: May 21, 2027
Patent 9326945*PED | Expires: Aug 24, 2031

EXCLUSIVITY:
Code: PED | Date: Oct 17, 2028
Code: NS | Date: Apr 17, 2028